FAERS Safety Report 7575080-5 (Version None)
Quarter: 2011Q2

REPORT INFORMATION
  Report Type: 
  Country: None (occurrence: None)
  Receive Date: 20110627
  Receipt Date: 20110617
  Transmission Date: 20111010
  Serious: Yes (Other)
  Sender: FDA-Public Use
  Company Number: JP-ASTRAZENECA-2011SE37934

PATIENT
  Sex: Male

DRUGS (2)
  1. MEROPENEM [Suspect]
     Indication: PYELONEPHRITIS
     Route: 042
  2. ANTIPYRETICS, ANALGESICS AND ANTI-INFLAMMATORY AGENTS [Suspect]
     Route: 065

REACTIONS (1)
  - TUBULOINTERSTITIAL NEPHRITIS [None]
